FAERS Safety Report 10519408 (Version 1)
Quarter: 2014Q4

REPORT INFORMATION
  Report Type: Spontaneous
  Country: US (occurrence: None)
  Receive Date: 20141014
  Receipt Date: 20141014
  Transmission Date: 20150528
  Serious: Yes (Disabling)
  Sender: FDA-Public Use
  Company Number: None

PATIENT
  Age: 33 Year
  Sex: Male
  Weight: 74.84 kg

DRUGS (1)
  1. CIPROFLOXACIN. [Suspect]
     Active Substance: CIPROFLOXACIN
     Indication: URINARY TRACT INFECTION
     Dosage: 1 TWICE DAILY TAKEN BY MOUTH
     Route: 048
     Dates: start: 20131113, end: 20131116

REACTIONS (4)
  - Gait disturbance [None]
  - Pain [None]
  - Tendon pain [None]
  - Diarrhoea [None]

NARRATIVE: CASE EVENT DATE: 20131113
